FAERS Safety Report 11224054 (Version 1)
Quarter: 2015Q2

REPORT INFORMATION
  Report Type: Spontaneous
  Country: AU (occurrence: None)
  Receive Date: 20150625
  Receipt Date: 20150625
  Transmission Date: 20150821
  Serious: Yes (Other)
  Sender: FDA-Public Use
  Company Number: 8031014

PATIENT
  Age: 29 Year
  Sex: Female

DRUGS (1)
  1. THYROXINE (LEVOTHYROXINE) (LEVOTHYROXINE SODIUM) [Suspect]
     Active Substance: LEVOTHYROXINE
     Indication: BASEDOW^S DISEASE

REACTIONS (7)
  - Treatment noncompliance [None]
  - Caesarean section [None]
  - Live birth [None]
  - Ectopic thyroid [None]
  - Atrial fibrillation [None]
  - Hyperthyroidism [None]
  - Maternal exposure during pregnancy [None]
